FAERS Safety Report 4399311-8 (Version None)
Quarter: 2004Q3

REPORT INFORMATION
  Report Type: 
  Country: None (occurrence: None)
  Receive Date: 20040712
  Receipt Date: 20040526
  Transmission Date: 20050211
  Serious: Yes (Hospitalization)
  Sender: FDA-Public Use
  Company Number: D01200401871

PATIENT
  Age: 70 Year
  Sex: Male

DRUGS (14)
  1. OXALIPLATIN - SOLUTION - 85 MG/M2 [Suspect]
     Dosage: 85 MG/M2 Q2W
     Route: 042
     Dates: start: 20040517, end: 20040517
  2. FLUOROURACIL [Suspect]
     Dosage: 400 MG/M2 AS IV BOLUS THEN 600 MG/M2 AS22HRS. CONTINUOUS INFUSION ON D1-D2 Q2W
     Route: 042
     Dates: start: 20040517, end: 20040518
  3. (SR57746 OR PLACEBO) - CAPSULE - 1 MG [Suspect]
     Indication: PROPHYLAXIS
     Dosage: 1 MG QD
     Route: 048
     Dates: start: 20040325, end: 20040524
  4. LEUCOVORIN CALCIUM [Suspect]
     Dosage: 200 MG/M2 AS 2 HOURS INFUSION ON D1-D2-Q2W
     Route: 042
     Dates: start: 20040517, end: 20040518
  5. OMEPRAZOLE [Concomitant]
  6. TEMAZEPAM [Concomitant]
  7. SIMVASTATIN [Concomitant]
  8. PARACETAMOL [Concomitant]
  9. ONDANSETRON [Concomitant]
  10. DEXAMETHASONE [Concomitant]
  11. DOMPERIDONE [Concomitant]
  12. CHLORPHEXIDE [Concomitant]
  13. DICLOFENAC [Concomitant]
  14. CO-DANTHRAMER [Concomitant]

REACTIONS (1)
  - ANGINA UNSTABLE [None]
